FAERS Safety Report 4711737-9 (Version None)
Quarter: 2005Q2

REPORT INFORMATION
  Report Type: 
  Country: None (occurrence: None)
  Receive Date: 20050629
  Receipt Date: 20050425
  Transmission Date: 20051028
  Serious: No
  Sender: FDA-Public Use
  Company Number: 05P-163-0298383-00

PATIENT
  Age: 81 Year
  Sex: Female
  Weight: 92 kg

DRUGS (6)
  1. HUMIRA [Suspect]
     Indication: RHEUMATOID ARTHRITIS
     Dosage: 40 MG, 1 IN 2 WK, SUBCUTANEOUS
     Route: 058
     Dates: start: 20050404
  2. CYANOCOBALAMIN [Concomitant]
  3. METHYLCELLULOSE [Concomitant]
  4. PREDNISONE [Concomitant]
  5. ATENOLOL [Concomitant]
  6. LISINOPRIL [Concomitant]

REACTIONS (2)
  - NECK PAIN [None]
  - SHOULDER PAIN [None]
